FAERS Safety Report 25143867 (Version 1)
Quarter: 2025Q2

REPORT INFORMATION
  Report Type: Spontaneous
  Country: CN (occurrence: CN)
  Receive Date: 20250401
  Receipt Date: 20250401
  Transmission Date: 20250716
  Serious: Yes (Other)
  Sender: PFIZER
  Company Number: CN-PFIZER INC-PV202500036939

PATIENT
  Age: 34 Year
  Sex: Male
  Weight: 80 kg

DRUGS (2)
  1. IRINOTECAN HYDROCHLORIDE [Suspect]
     Active Substance: IRINOTECAN HYDROCHLORIDE
     Indication: Colon cancer
     Dosage: 0.3 G, 1X/DAY
     Route: 041
     Dates: start: 20250315, end: 20250315
  2. RALTITREXED [Suspect]
     Active Substance: RALTITREXED
     Indication: Neoplasm malignant
     Dosage: 4 MG, 1X/DAY
     Route: 041
     Dates: start: 20250315, end: 20250315

REACTIONS (1)
  - Liver injury [Not Recovered/Not Resolved]

NARRATIVE: CASE EVENT DATE: 20250318
